FAERS Safety Report 8988837 (Version 1)
Quarter: 2012Q4

REPORT INFORMATION
  Report Type: 
  Country: JP (occurrence: JP)
  Receive Date: 20121228
  Receipt Date: 20121228
  Transmission Date: 20130627
  Serious: Yes (Hospitalization)
  Sender: FDA-Public Use
  Company Number: JP-009507513-1212JPN010700

PATIENT
  Age: 68 Year
  Sex: Female
  Weight: 55 kg

DRUGS (10)
  1. PEGINTRON [Suspect]
     Indication: CHRONIC HEPATITIS C
     Dosage: 1.4 Microgram per kilogram, qw
     Route: 058
     Dates: start: 20120906, end: 20120912
  2. PEGINTRON [Suspect]
     Dosage: 0.7 Microgram per kilogram, qw
     Route: 058
     Dates: start: 20120913, end: 20121106
  3. REBETOL [Suspect]
     Indication: CHRONIC HEPATITIS C
     Dosage: 400 mg, qd
     Route: 048
     Dates: start: 20120906, end: 20121003
  4. REBETOL [Suspect]
     Dosage: 200 mg, qd
     Route: 048
     Dates: start: 20121004, end: 20121106
  5. TELAVIC [Suspect]
     Indication: CHRONIC HEPATITIS C
     Dosage: 1500 mg, qd
     Route: 048
     Dates: start: 20120906, end: 20121106
  6. PREDONINE [Concomitant]
     Indication: ADVERSE EVENT
     Dosage: 20 mg, qd
     Route: 048
     Dates: start: 20121106, end: 20121107
  7. PREDONINE [Concomitant]
     Dosage: 30 mg, UNK
     Route: 048
     Dates: start: 20121108, end: 20121111
  8. PREDONINE [Concomitant]
     Dosage: 20 mg, qd
     Route: 048
     Dates: start: 20121112, end: 20121114
  9. PREDONINE [Concomitant]
     Dosage: 10 mg, UNK
     Route: 048
     Dates: start: 20121115, end: 20121120
  10. TAKEPRON [Concomitant]
     Indication: GASTRIC ULCER
     Dosage: 15 mg, UNK
     Route: 048

REACTIONS (2)
  - Neutrophil count decreased [Recovering/Resolving]
  - Rash [Recovering/Resolving]
